FAERS Safety Report 23210331 (Version 1)
Quarter: 2023Q4

REPORT INFORMATION
  Report Type: Report from Study
  Country: IT (occurrence: IT)
  Receive Date: 20231121
  Receipt Date: 20231121
  Transmission Date: 20240110
  Serious: Yes (Other)
  Sender: FDA-Public Use
  Company Number: None

PATIENT
  Age: 75 Year
  Sex: Female

DRUGS (1)
  1. OXALIPLATIN [Suspect]
     Active Substance: OXALIPLATIN
     Indication: Biliary neoplasm
     Dates: start: 20231011, end: 20231011

REACTIONS (4)
  - Off label use [Recovering/Resolving]
  - Nausea [Recovered/Resolved]
  - Palmar erythema [Recovering/Resolving]
  - Retching [Recovered/Resolved]

NARRATIVE: CASE EVENT DATE: 20231011
